FAERS Safety Report 9115664 (Version 2)
Quarter: 2013Q1

REPORT INFORMATION
  Report Type: Spontaneous
  Country: US (occurrence: None)
  Receive Date: 20130128
  Receipt Date: 20130222
  Transmission Date: 20140127
  Serious: Yes (Other)
  Sender: FDA-Public Use
  Company Number: 2012-7843

PATIENT
  Age: 15 Year
  Sex: Male
  Weight: 49 kg

DRUGS (7)
  1. INCRELEX [Suspect]
     Indication: BODY HEIGHT BELOW NORMAL
     Dates: start: 20120226, end: 201209
  2. INCRELEX [Suspect]
     Indication: OFF LABEL USE
     Dates: start: 20120226, end: 201209
  3. HUMIRA [Suspect]
     Indication: PRODUCT USED FOR UNKNOWN INDICATION
  4. PREDNISONE (PREDNISONE) [Concomitant]
  5. MULTIVITAMIN (MULTIVATIM) [Concomitant]
  6. URSODIOL (URSODEOXYCHOLIC ACID) [Concomitant]
  7. AZATHIOPRINE (AZATHIOPRINE) [Concomitant]

REACTIONS (6)
  - Papilloedema [None]
  - Headache [None]
  - Visual impairment [None]
  - Fatigue [None]
  - Insulin-like growth factor increased [None]
  - Neuropathy peripheral [None]
